FAERS Safety Report 7821216-8 (Version None)
Quarter: 2011Q4

REPORT INFORMATION
  Report Type: 
  Country: None (occurrence: None)
  Receive Date: 20111018
  Receipt Date: 20111013
  Transmission Date: 20120403
  Serious: Yes (Hospitalization, Other)
  Sender: FDA-Public Use
  Company Number: CHPA2011US14181

PATIENT
  Age: 52 Year
  Sex: Male

DRUGS (2)
  1. METAMUCIL-2 [Suspect]
  2. BENEFIBER W/ WHEAT DEXTRIN [Suspect]
     Indication: MEDICAL DIET
     Dosage: 3 TSP, UNK
     Route: 051
     Dates: start: 20090101, end: 20100101

REACTIONS (4)
  - DIARRHOEA [None]
  - CHOLECYSTECTOMY [None]
  - ABDOMINAL DISTENSION [None]
  - WRONG TECHNIQUE IN DRUG USAGE PROCESS [None]
